FAERS Safety Report 6516297-8 (Version None)
Quarter: 2009Q4

REPORT INFORMATION
  Report Type: 
  Country: None (occurrence: None)
  Receive Date: 20091223
  Receipt Date: 20091211
  Transmission Date: 20100525
  Serious: Yes (Other)
  Sender: FDA-Public Use
  Company Number: JP-BRISTOL-MYERS SQUIBB COMPANY-14897722

PATIENT

DRUGS (6)
  1. VEPESID [Suspect]
     Indication: HEPATOBLASTOMA
  2. IFOSFAMIDE [Suspect]
     Indication: HEPATOBLASTOMA
     Dosage: FORM: INJ.
     Route: 042
  3. CISPLATIN [Suspect]
     Indication: HEPATOBLASTOMA
  4. PIRARUBICIN [Suspect]
     Indication: HEPATOBLASTOMA
     Dosage: FORM: INJ. ROUTE OF ADMINISTRATION: IA.
  5. ADRIAMYCIN PFS [Suspect]
     Indication: HEPATOBLASTOMA
     Dosage: FORM: INJ. ROUTE OF ADMINISTRATION: IA.
  6. CARBOPLATIN [Suspect]
     Indication: HEPATOBLASTOMA
     Dosage: FORM: INJ. ROUTE OF ADMINISTRATION: IA.
     Route: 041

REACTIONS (1)
  - LEUKAEMIA [None]
